FAERS Safety Report 19634110 (Version 1)
Quarter: 2021Q3

REPORT INFORMATION
  Report Type: Spontaneous
  Country: BR (occurrence: BR)
  Receive Date: 20210730
  Receipt Date: 20210730
  Transmission Date: 20211014
  Serious: Yes (Other)
  Sender: FDA-Public Use
  Company Number: BR-NOVOPROD-832678

PATIENT
  Age: 64 Year
  Sex: Male

DRUGS (5)
  1. ASPIRIN;CLOPIDOGREL [Concomitant]
     Active Substance: ASPIRIN\CLOPIDOGREL
     Dosage: UNKASPIRIN PREVENT 100 +CLOPIDOGREL)
  2. AMLODIPINE;BISOPROLOL [Concomitant]
     Active Substance: AMLODIPINE\BISOPROLOL
     Dosage: UNK (BISOPROLOL 2.5 + AMLODIPINE 5)
  3. INSULATARD HM [Suspect]
     Active Substance: INSULIN HUMAN
     Indication: PRODUCT USED FOR UNKNOWN INDICATION
     Dosage: 85 IU, QD (60 IU + 25 IU AT NIGHT)
  4. ROSUVASTATIN. [Concomitant]
     Active Substance: ROSUVASTATIN
     Dosage: 20 MG, BID
  5. HCTZ [Concomitant]
     Active Substance: HYDROCHLOROTHIAZIDE
     Dosage: 25 MG

REACTIONS (3)
  - Myocardial infarction [Unknown]
  - Weight abnormal [Unknown]
  - Diabetes mellitus inadequate control [Unknown]
